FAERS Safety Report 19910513 (Version 2)
Quarter: 2021Q4

REPORT INFORMATION
  Report Type: Spontaneous
  Country: GB (occurrence: GB)
  Receive Date: 20211004
  Receipt Date: 20211004
  Transmission Date: 20220303
  Serious: Yes (Death)
  Sender: FDA-Public Use
  Company Number: GB-MHRA-MIDB-D2E10F6E-2F48-4157-BCC0-C8FFA80BAEB0

PATIENT

DRUGS (1)
  1. TADALAFIL [Suspect]
     Active Substance: TADALAFIL
     Indication: Pulmonary hypertension
     Dosage: 40MG
     Route: 048

REACTIONS (1)
  - Diarrhoea [Fatal]
